FAERS Safety Report 7216316-X (Version None)
Quarter: 2011Q1

REPORT INFORMATION
  Report Type: 
  Country: None (occurrence: None)
  Receive Date: 20110105
  Receipt Date: 20110105
  Transmission Date: 20110831
  Serious: Yes (Other)
  Sender: FDA-Public Use
  Company Number: None

PATIENT
  Sex: Male
  Weight: 88.4514 kg

DRUGS (1)
  1. OXYCONTIN [Suspect]
     Indication: FIBROMYALGIA
     Dosage: 1 EVERY 12 HOURS  1 = 12 HOURS

REACTIONS (2)
  - INADEQUATE ANALGESIA [None]
  - PRODUCT FORMULATION ISSUE [None]
